FAERS Safety Report 18078767 (Version 1)
Quarter: 2020Q3

REPORT INFORMATION
  Report Type: Spontaneous
  Country: US (occurrence: US)
  Receive Date: 20200727
  Receipt Date: 20200727
  Transmission Date: 20201103
  Serious: Yes (Hospitalization)
  Sender: FDA-Public Use
  Company Number: None

PATIENT
  Age: 52 Year
  Sex: Female

DRUGS (5)
  1. XOLAIR [Suspect]
     Active Substance: OMALIZUMAB
     Indication: IDIOPATHIC URTICARIA
     Route: 058
     Dates: start: 201807
  2. METHYLPHENID [Concomitant]
     Active Substance: METHYLPHENIDATE
  3. NAPROXEN. [Concomitant]
     Active Substance: NAPROXEN
  4. LIDOCAINE. [Concomitant]
     Active Substance: LIDOCAINE
  5. XANAX [Concomitant]
     Active Substance: ALPRAZOLAM

REACTIONS (1)
  - Cerebral haemorrhage [None]

NARRATIVE: CASE EVENT DATE: 20200505
